FAERS Safety Report 8265765-X (Version None)
Quarter: 2012Q2

REPORT INFORMATION
  Report Type: 
  Country: None (occurrence: None)
  Receive Date: 20120406
  Receipt Date: 20120327
  Transmission Date: 20120825
  Serious: Yes (Hospitalization, Other)
  Sender: FDA-Public Use
  Company Number: GB-ROCHE-1053066

PATIENT
  Age: 30 Year
  Sex: Female

DRUGS (7)
  1. RITUXIMAB [Suspect]
     Indication: PRODUCT USED FOR UNKNOWN INDICATION
     Dates: start: 20110701
  2. CALCIUM CARBONATE [Concomitant]
  3. IBUPROFEN [Concomitant]
  4. FOLIC ACID [Concomitant]
  5. LANSOPRAZOLE [Concomitant]
  6. HYDROXYCHLOROQUINE SULFATE [Concomitant]
  7. PREDNISOLONE [Concomitant]

REACTIONS (4)
  - VASCULITIC RASH [None]
  - PHOTOPHOBIA [None]
  - VOMITING [None]
  - HEADACHE [None]
